FAERS Safety Report 9895516 (Version 2)
Quarter: 2014Q1

REPORT INFORMATION
  Report Type: Spontaneous
  Country: US (occurrence: US)
  Receive Date: 20140213
  Receipt Date: 20140213
  Transmission Date: 20141002
  Serious: No
  Sender: FDA-Public Use
  Company Number: US-BRISTOL-MYERS SQUIBB COMPANY-17142670

PATIENT
  Age: 63 Year
  Sex: Female
  Weight: 47.16 kg

DRUGS (1)
  1. ORENCIA FOR INJ [Suspect]
     Indication: RHEUMATOID ARTHRITIS
     Dosage: EXP DATE:APR2014?LAST DOSE:14JAN2013
     Route: 058
     Dates: start: 201208

REACTIONS (1)
  - Drug dose omission [Unknown]
